FAERS Safety Report 8588917-8 (Version None)
Quarter: 2012Q3

REPORT INFORMATION
  Report Type: 
  Country: None (occurrence: None)
  Receive Date: 20120803
  Receipt Date: 20120803
  Transmission Date: 20120928
  Serious: No
  Sender: FDA-Public Use
  Company Number: None

PATIENT
  Age: 31 Year
  Sex: Female

DRUGS (2)
  1. TBCR #30 [Suspect]
  2. POTASSIUM CHLORIDE [Suspect]
     Indication: CARPAL TUNNEL SYNDROME
     Dosage: 1/DAY
     Dates: start: 20120619

REACTIONS (1)
  - MUSCULOSKELETAL PAIN [None]
